FAERS Safety Report 13966596 (Version 1)
Quarter: 2017Q3

REPORT INFORMATION
  Report Type: Spontaneous
  Country: US (occurrence: None)
  Receive Date: 20170913
  Receipt Date: 20170913
  Transmission Date: 20171128
  Serious: No
  Sender: FDA-Public Use
  Company Number: None

PATIENT
  Age: 75 Year
  Sex: Male

DRUGS (1)
  1. LONSURF [Suspect]
     Active Substance: TIPIRACIL HYDROCHLORIDE\TRIFLURIDINE
     Indication: COLON CANCER
     Route: 048
     Dates: start: 20170713

REACTIONS (5)
  - Miliaria [None]
  - Rash erythematous [None]
  - Rash [None]
  - Rash pruritic [None]
  - Eyelid rash [None]

NARRATIVE: CASE EVENT DATE: 20170813
